FAERS Safety Report 18675298 (Version 1)
Quarter: 2020Q4

REPORT INFORMATION
  Report Type: Spontaneous
  Country: US (occurrence: US)
  Receive Date: 20201229
  Receipt Date: 20201229
  Transmission Date: 20210114
  Serious: No
  Sender: FDA-Public Use
  Company Number: US-TEVA-2020-US-1862683

PATIENT
  Age: 72 Year
  Sex: Female

DRUGS (1)
  1. CLONIDINE. [Suspect]
     Active Substance: CLONIDINE
     Dosage: START DATE: OVER 20 YEARS AGO
     Route: 065

REACTIONS (2)
  - Hypoaesthesia [Recovered/Resolved]
  - Product substitution issue [Unknown]
